FAERS Safety Report 5056341-0 (Version None)
Quarter: 2006Q3

REPORT INFORMATION
  Report Type: 
  Country: None (occurrence: None)
  Receive Date: 20060720
  Receipt Date: 20041001
  Transmission Date: 20061208
  Serious: Yes (Hospitalization, Disabling)
  Sender: FDA-Public Use
  Company Number: US-ROCHE-382207

PATIENT
  Age: 28 Year
  Sex: Male
  Weight: 81.6 kg

DRUGS (1)
  1. ACCUTANE [Suspect]
     Route: 048
     Dates: start: 19851122, end: 19860624

REACTIONS (72)
  - ALCOHOLISM [None]
  - ANAEMIA [None]
  - ARTHRITIS ENTEROPATHIC [None]
  - ASTHMA [None]
  - BACK PAIN [None]
  - BLOOD CORTISOL DECREASED [None]
  - BLOOD IRON DECREASED [None]
  - BRONCHITIS [None]
  - CARPAL TUNNEL SYNDROME [None]
  - COLITIS ULCERATIVE [None]
  - CONTUSION [None]
  - CONVULSION [None]
  - CORNEAL ABRASION [None]
  - CROHN'S DISEASE [None]
  - CRUSH INJURY [None]
  - CYST [None]
  - DECREASED APPETITE [None]
  - DERMATITIS [None]
  - DIZZINESS [None]
  - DRUG DOSE OMISSION [None]
  - EUSTACHIAN TUBE OBSTRUCTION [None]
  - FALL [None]
  - FATIGUE [None]
  - FEELING COLD [None]
  - FLUID INTAKE REDUCED [None]
  - FOREIGN BODY IN EYE [None]
  - GASTROOESOPHAGEAL REFLUX DISEASE [None]
  - GRAND MAL CONVULSION [None]
  - HAND FRACTURE [None]
  - HEADACHE [None]
  - HEPATIC STEATOSIS [None]
  - HORDEOLUM [None]
  - HYPOAESTHESIA [None]
  - INFECTIOUS MONONUCLEOSIS [None]
  - LETHARGY [None]
  - LOCALISED INFECTION [None]
  - LOSS OF CONSCIOUSNESS [None]
  - MUSCLE SPASMS [None]
  - MUSCLE STRAIN [None]
  - MUSCULOSKELETAL CHEST PAIN [None]
  - NAUSEA [None]
  - NIGHT SWEATS [None]
  - OEDEMA PERIPHERAL [None]
  - ONYCHOCLASIS [None]
  - OSTEOPENIA [None]
  - OTITIS EXTERNA [None]
  - OTITIS MEDIA [None]
  - PAIN IN EXTREMITY [None]
  - PARAESTHESIA [None]
  - PARONYCHIA [None]
  - PEPTIC ULCER [None]
  - PNEUMONIA [None]
  - PSEUDOPOLYPOSIS [None]
  - RHEUMATOID ARTHRITIS [None]
  - RHINITIS ALLERGIC [None]
  - ROAD TRAFFIC ACCIDENT [None]
  - SACROILIITIS [None]
  - SINUSITIS [None]
  - SOMNOLENCE [None]
  - SPONDYLITIS [None]
  - THIRST [None]
  - TONGUE GEOGRAPHIC [None]
  - TRACHEOBRONCHITIS [None]
  - TRIGGER FINGER [None]
  - TYMPANIC MEMBRANE PERFORATION [None]
  - UPPER RESPIRATORY TRACT INFECTION [None]
  - VARICOSE VEIN [None]
  - VASOCONSTRICTION [None]
  - VIRAL INFECTION [None]
  - VIRAL PHARYNGITIS [None]
  - WEIGHT DECREASED [None]
  - WOUND [None]
